FAERS Safety Report 8971202 (Version 1)
Quarter: 2012Q4

REPORT INFORMATION
  Report Type: 
  Country: US (occurrence: US)
  Receive Date: 20121217
  Receipt Date: 20121217
  Transmission Date: 20130627
  Serious: Yes (Life-Threatening, Disabling, Other)
  Sender: FDA-Public Use
  Company Number: US-GLAXOSMITHKLINE-A1005090A

PATIENT
  Age: 66 Year
  Sex: Male

DRUGS (7)
  1. AVODART [Suspect]
     Indication: HAIR GROWTH ABNORMAL
     Route: 048
  2. LITHIUM [Concomitant]
  3. ABILIFY [Concomitant]
  4. AMBIEN [Concomitant]
  5. COLCHICINE [Concomitant]
  6. LAMICTAL [Concomitant]
  7. METHYLFOLATE [Concomitant]

REACTIONS (2)
  - Depressive symptom [Not Recovered/Not Resolved]
  - Off label use [Unknown]
